FAERS Safety Report 8933914 (Version 1)
Quarter: 2012Q4

REPORT INFORMATION
  Report Type: 
  Country: BR (occurrence: BR)
  Receive Date: 20121129
  Receipt Date: 20121129
  Transmission Date: 20130627
  Serious: Yes (Disabling, Other)
  Sender: FDA-Public Use
  Company Number: BR-ASTRAZENECA-2012SE88886

PATIENT
  Sex: Male

DRUGS (2)
  1. CRESTOR [Suspect]
     Route: 048
     Dates: start: 2007, end: 20121120
  2. CRESTOR [Suspect]
     Route: 048
     Dates: start: 201211

REACTIONS (2)
  - Cerebrovascular accident [Unknown]
  - Asthenia [Unknown]
